FAERS Safety Report 7471380-8 (Version None)
Quarter: 2011Q2

REPORT INFORMATION
  Report Type: 
  Country: None (occurrence: None)
  Receive Date: 20110510
  Receipt Date: 20110428
  Transmission Date: 20111010
  Serious: Yes (Other)
  Sender: FDA-Public Use
  Company Number: FI-ELI_LILLY_AND_COMPANY-FI201104008120

PATIENT
  Sex: Female

DRUGS (7)
  1. CYMBALTA [Suspect]
     Indication: DEPRESSION
     Dosage: 60 MG, QD
     Dates: start: 20110317
  2. MAREVAN [Concomitant]
     Dosage: 1.25 MG, UNK
     Route: 048
  3. DIGOXIN [Concomitant]
     Dosage: 0.125 MG, UNK
     Route: 048
  4. FURESIS [Concomitant]
     Dosage: 20 MG, QD
  5. KALCIPOS-D [Concomitant]
     Dosage: UNK, QD
     Route: 048
  6. ATACAND [Concomitant]
     Dosage: 8 MG, QD
     Route: 048
  7. MAREVAN [Concomitant]
     Indication: ATRIAL FIBRILLATION
     Dosage: 5 MG, UNK
     Route: 048

REACTIONS (2)
  - HAEMATOMA [None]
  - INTERNATIONAL NORMALISED RATIO INCREASED [None]
